FAERS Safety Report 14599845 (Version 1)
Quarter: 2018Q1

REPORT INFORMATION
  Report Type: Spontaneous
  Country: US (occurrence: US)
  Receive Date: 20180304
  Receipt Date: 20180304
  Transmission Date: 20180509
  Serious: No
  Sender: FDA-Public Use
  Company Number: None

PATIENT
  Age: 26 Year
  Sex: Female
  Weight: 135 kg

DRUGS (1)
  1. TOBRAMYCIN/ DEXAMETHASONE OPHTHALMIC SUSPENSION [Suspect]
     Active Substance: DEXAMETHASONE\TOBRAMYCIN

REACTIONS (1)
  - Dysgeusia [None]

NARRATIVE: CASE EVENT DATE: 20180304
